FAERS Safety Report 8466491-4 (Version None)
Quarter: 2012Q2

REPORT INFORMATION
  Report Type: 
  Country: None (occurrence: None)
  Receive Date: 20120626
  Receipt Date: 20120613
  Transmission Date: 20120825
  Serious: Yes (Hospitalization)
  Sender: FDA-Public Use
  Company Number: US-ACTELION-A-NJ2012-64095

PATIENT

DRUGS (16)
  1. LANTUS [Concomitant]
  2. FERROUS SULFATE TAB [Concomitant]
  3. CHOLECALCIFEROL [Concomitant]
  4. TRACLEER [Suspect]
     Dosage: 62.5 MG, BID
     Route: 048
     Dates: start: 20101209, end: 20101222
  5. ZOLPIDEM [Concomitant]
  6. TRAMADOL HCL [Concomitant]
  7. LORAZEPAM [Concomitant]
  8. NYSTATIN [Concomitant]
  9. BUPROPION HCL [Concomitant]
  10. TRACLEER [Suspect]
     Indication: PULMONARY ARTERIAL HYPERTENSION
     Dosage: 125 MG, BID
     Route: 048
     Dates: start: 20101223
  11. BISACODYL [Concomitant]
  12. NOVOLOG [Concomitant]
  13. COUMADIN [Concomitant]
  14. OXYCODONE HCL [Concomitant]
  15. POLYETHYLENE GLYCOL [Concomitant]
  16. FLUOXETINE [Concomitant]

REACTIONS (7)
  - PYREXIA [None]
  - RENAL FAILURE [None]
  - SALPINGO-OOPHORECTOMY UNILATERAL [None]
  - NAUSEA [None]
  - BACK PAIN [None]
  - OVARIAN CANCER [None]
  - DIARRHOEA [None]
